FAERS Safety Report 19783733 (Version 1)
Quarter: 2021Q3

REPORT INFORMATION
  Report Type: Spontaneous
  Country: US (occurrence: US)
  Receive Date: 20210831
  Receipt Date: 20210831
  Transmission Date: 20211014
  Serious: Yes (Hospitalization)
  Sender: FDA-Public Use
  Company Number: None

PATIENT
  Age: 69 Year
  Sex: Female
  Weight: 67.7 kg

DRUGS (1)
  1. TOPOTECAN [Suspect]
     Active Substance: TOPOTECAN HYDROCHLORIDE
     Dates: end: 20210528

REACTIONS (16)
  - Chills [None]
  - Vomiting [None]
  - White blood cell count increased [None]
  - Asthenia [None]
  - Fatigue [None]
  - Bacterial infection [None]
  - Pyelonephritis [None]
  - Sepsis [None]
  - Anaemia [None]
  - Nausea [None]
  - Hypoxia [None]
  - Diarrhoea [None]
  - Atelectasis [None]
  - Body temperature increased [None]
  - Urinary tract infection [None]
  - Proteus test positive [None]

NARRATIVE: CASE EVENT DATE: 20210621
